FAERS Safety Report 25422735 (Version 1)
Quarter: 2025Q2

REPORT INFORMATION
  Report Type: Spontaneous
  Country: US (occurrence: None)
  Receive Date: 20250610
  Receipt Date: 20250610
  Transmission Date: 20250717
  Serious: Yes (Hospitalization)
  Sender: FDA-CTU
  Company Number: None

PATIENT
  Age: 63 Year
  Sex: Male

DRUGS (1)
  1. LOSARTAN [Suspect]
     Active Substance: LOSARTAN
     Indication: Hypertension
     Dosage: FREQUENCY : DAILY;?
     Dates: start: 20250224, end: 20250307

REACTIONS (3)
  - Acute kidney injury [None]
  - Hypotension [None]
  - Therapy interrupted [None]

NARRATIVE: CASE EVENT DATE: 20250310
